FAERS Safety Report 19589913 (Version 2)
Quarter: 2021Q3

REPORT INFORMATION
  Report Type: Report from Study
  Country: AR (occurrence: AR)
  Receive Date: 20210721
  Receipt Date: 20210724
  Transmission Date: 20211014
  Serious: Yes (Death, Hospitalization)
  Sender: FDA-Public Use
  Company Number: AR-PUMA BIOTECHNOLOGY, INC.-2021AR000535

PATIENT

DRUGS (8)
  1. CAPECITABINE. [Concomitant]
     Active Substance: CAPECITABINE
     Indication: BREAST CANCER METASTATIC
     Dosage: UNK
     Dates: start: 20210106, end: 202101
  2. AMITRIPTYLINE HYDROCHLORIDE. [Concomitant]
     Active Substance: AMITRIPTYLINE HYDROCHLORIDE
     Indication: PRODUCT USED FOR UNKNOWN INDICATION
     Dosage: UNK
  3. NERLYNX [Suspect]
     Active Substance: NERATINIB
     Dosage: 240MG DAILY
     Route: 048
     Dates: start: 20210625
  4. NERLYNX [Suspect]
     Active Substance: NERATINIB
     Dosage: 240MG DAILY
     Route: 048
     Dates: start: 20210210, end: 20210614
  5. NERLYNX [Suspect]
     Active Substance: NERATINIB
     Indication: BREAST CANCER METASTATIC
     Dosage: 200MG DAILY (5 TABLETS)
     Route: 048
     Dates: start: 20201203, end: 202101
  6. LOPERAMIDE [Concomitant]
     Active Substance: LOPERAMIDE
     Indication: PROPHYLAXIS AGAINST DIARRHOEA
     Dosage: 2 PILLS OF LOPERAMIDE TOGETHER ON 09. FEB 2021 AND THEN EVERY 6 HOURS ()
     Dates: start: 20210209
  7. NERLYNX [Suspect]
     Active Substance: NERATINIB
     Dosage: 240 MG DAILY
     Route: 048
     Dates: start: 20210105, end: 20210204
  8. NERLYNX [Suspect]
     Active Substance: NERATINIB
     Dosage: 240MG DAILY
     Route: 048
     Dates: start: 20210207, end: 20210208

REACTIONS (37)
  - Tooth fracture [Unknown]
  - Feeling hot [Unknown]
  - Erythema [Unknown]
  - Alopecia [Unknown]
  - Taste disorder [Unknown]
  - Urinary incontinence [Unknown]
  - Headache [Unknown]
  - Dry throat [Unknown]
  - Arthralgia [Not Recovered/Not Resolved]
  - Dysgraphia [Unknown]
  - Infection [Not Recovered/Not Resolved]
  - Discoloured vomit [Unknown]
  - Tooth disorder [Unknown]
  - Onychoclasis [Unknown]
  - Trunk injury [Not Recovered/Not Resolved]
  - Nausea [Unknown]
  - Skin burning sensation [Not Recovered/Not Resolved]
  - Skin disorder [Unknown]
  - Speech disorder [Unknown]
  - Panic attack [Unknown]
  - Body temperature increased [Unknown]
  - Decreased appetite [Unknown]
  - Toothache [Unknown]
  - COVID-19 [Not Recovered/Not Resolved]
  - Nasopharyngitis [Unknown]
  - Fall [Unknown]
  - Spinal pain [Not Recovered/Not Resolved]
  - Diarrhoea [Unknown]
  - Death [Fatal]
  - Lip blister [Unknown]
  - Choking sensation [Unknown]
  - Feeling of despair [Unknown]
  - Skin exfoliation [Unknown]
  - Abdominal pain [Unknown]
  - Anxiety [Unknown]
  - Pain [Not Recovered/Not Resolved]
  - Off label use [Not Recovered/Not Resolved]

NARRATIVE: CASE EVENT DATE: 202012
